FAERS Safety Report 5393526-8 (Version None)
Quarter: 2007Q3

REPORT INFORMATION
  Report Type: 
  Country: None (occurrence: None)
  Receive Date: 20070723
  Receipt Date: 20060728
  Transmission Date: 20080115
  Serious: No
  Sender: FDA-Public Use
  Company Number: A0613985A

PATIENT
  Age: 45 Year
  Sex: Male

DRUGS (4)
  1. AVANDIA [Suspect]
     Indication: DRUG USE FOR UNKNOWN INDICATION
     Route: 048
     Dates: start: 20051001, end: 20060501
  2. INSULIN [Concomitant]
  3. GLYBURIDE [Concomitant]
  4. PRECOSE [Concomitant]

REACTIONS (2)
  - BLOOD GLUCOSE INCREASED [None]
  - FATIGUE [None]
